FAERS Safety Report 6885291-X (Version None)
Quarter: 2010Q3

REPORT INFORMATION
  Report Type: 
  Country: None (occurrence: None)
  Receive Date: 20100729
  Receipt Date: 20100729
  Transmission Date: 20110219
  Serious: Yes (Hospitalization)
  Sender: FDA-Public Use
  Company Number: None

PATIENT
  Age: 78 Year
  Sex: Male

DRUGS (1)
  1. CLONIDINE [Suspect]
     Indication: HYPERTENSION
     Dosage: 0.1 MG BID PO
     Route: 048
     Dates: end: 20100713

REACTIONS (4)
  - APHAGIA [None]
  - ASTHENIA [None]
  - DEHYDRATION [None]
  - DEPRESSION [None]
